FAERS Safety Report 15146633 (Version 1)
Quarter: 2018Q3

REPORT INFORMATION
  Report Type: Spontaneous
  Country: US (occurrence: US)
  Receive Date: 20180715
  Receipt Date: 20180715
  Transmission Date: 20181010
  Serious: Yes (Hospitalization)
  Sender: FDA-Public Use
  Company Number: US-BEH-2018092658

PATIENT
  Age: 58 Year
  Sex: Male
  Weight: 71.66 kg

DRUGS (25)
  1. LIDODERM [Concomitant]
     Active Substance: LIDOCAINE
  2. EPINEPHRINE. [Concomitant]
     Active Substance: EPINEPHRINE
  3. CLONIDINE. [Concomitant]
     Active Substance: CLONIDINE
  4. HIZENTRA [Suspect]
     Active Substance: HUMAN IMMUNOGLOBULIN G
     Indication: IMMUNODEFICIENCY COMMON VARIABLE
     Dosage: UNK
     Route: 058
  5. HIZENTRA [Suspect]
     Active Substance: HUMAN IMMUNOGLOBULIN G
     Dosage: 7 G, UNK
     Route: 058
     Dates: start: 20110531
  6. FLEXERIL [Concomitant]
     Active Substance: CYCLOBENZAPRINE HYDROCHLORIDE
  7. TESTOSTERONE. [Concomitant]
     Active Substance: TESTOSTERONE
  8. TRIAMCINOLONE [Concomitant]
     Active Substance: TRIAMCINOLONE
  9. DIAZEPAM. [Concomitant]
     Active Substance: DIAZEPAM
  10. CARVEDILOL. [Concomitant]
     Active Substance: CARVEDILOL
  11. HIZENTRA [Suspect]
     Active Substance: HUMAN IMMUNOGLOBULIN G
     Dosage: UNK
     Route: 058
  12. DICLOFENAC [Concomitant]
     Active Substance: DICLOFENAC
  13. AMINOPYRIDINE [Concomitant]
     Active Substance: DALFAMPRIDINE
  14. ACETYL?L?CARNITINE [Concomitant]
  15. CYANOCOBALAMIN. [Concomitant]
     Active Substance: CYANOCOBALAMIN
  16. MORPHINE [Concomitant]
     Active Substance: MORPHINE
  17. CURAMIN [Concomitant]
     Active Substance: HERBALS
  18. PAROXETINE. [Concomitant]
     Active Substance: PAROXETINE
  19. ADDERALL [Concomitant]
     Active Substance: AMPHETAMINE ASPARTATE\AMPHETAMINE SULFATE\DEXTROAMPHETAMINE SACCHARATE\DEXTROAMPHETAMINE SULFATE
  20. HIZENTRA [Suspect]
     Active Substance: HUMAN IMMUNOGLOBULIN G
     Dosage: UNK
     Route: 058
  21. RIBOFLAVIN [Concomitant]
     Active Substance: RIBOFLAVIN
  22. DIPHENHYDRAMINE. [Concomitant]
     Active Substance: DIPHENHYDRAMINE
  23. HYDRALAZINE [Concomitant]
     Active Substance: HYDRALAZINE HYDROCHLORIDE
  24. CO?Q10?CHLORELLA [Concomitant]
  25. OXYCODONE [Concomitant]
     Active Substance: OXYCODONE

REACTIONS (1)
  - Spinal operation [Recovered/Resolved]

NARRATIVE: CASE EVENT DATE: 20180530
